FAERS Safety Report 16973609 (Version 2)
Quarter: 2019Q4

REPORT INFORMATION
  Report Type: Spontaneous
  Country: US (occurrence: US)
  Receive Date: 20191030
  Receipt Date: 20191108
  Transmission Date: 20200122
  Serious: No
  Sender: FDA-Public Use
  Company Number: US-PFIZER INC-2019462812

PATIENT
  Age: 26 Year
  Sex: Female
  Weight: 80.74 kg

DRUGS (1)
  1. LIDOCAINE HCL [Suspect]
     Active Substance: LIDOCAINE HYDROCHLORIDE
     Indication: DIAGNOSTIC ASPIRATION
     Dosage: 3 ML, UNK (3 ML IM ONCE)
     Route: 030
     Dates: start: 20191018, end: 20191018

REACTIONS (2)
  - Drug hypersensitivity [Recovered/Resolved]
  - Urticaria [Unknown]

NARRATIVE: CASE EVENT DATE: 20191018
